FAERS Safety Report 18127460 (Version 1)
Quarter: 2020Q3

REPORT INFORMATION
  Report Type: Spontaneous
  Country: JP (occurrence: JP)
  Receive Date: 20200810
  Receipt Date: 20200810
  Transmission Date: 20201103
  Serious: Yes (Other)
  Sender: FDA-Public Use
  Company Number: JP-AMGEN-JPNSP2020127535

PATIENT
  Sex: Female

DRUGS (1)
  1. RANMARK [Suspect]
     Active Substance: DENOSUMAB
     Indication: PRODUCT USED FOR UNKNOWN INDICATION
     Dosage: UNK, ONCE EVERY 4 WK
     Route: 065
     Dates: start: 20191213, end: 20200717

REACTIONS (9)
  - Gait disturbance [Unknown]
  - Interstitial lung disease [Not Recovered/Not Resolved]
  - Hypoaesthesia [Unknown]
  - Headache [Unknown]
  - Dental caries [Unknown]
  - Gingival disorder [Unknown]
  - Asthenia [Unknown]
  - Facial spasm [Unknown]
  - Discomfort [Unknown]
